FAERS Safety Report 5145974-9 (Version None)
Quarter: 2006Q4

REPORT INFORMATION
  Report Type: 
  Country: None (occurrence: None)
  Receive Date: 20061108
  Receipt Date: 20061101
  Transmission Date: 20070319
  Serious: Yes (Hospitalization)
  Sender: FDA-Public Use
  Company Number: JP-BRISTOL-MYERS SQUIBB COMPANY-13564091

PATIENT
  Age: 49 Year
  Sex: Female

DRUGS (1)
  1. KENACORT [Suspect]
     Indication: ENDOPHTHALMITIS
     Route: 031

REACTIONS (1)
  - CATARACT [None]
